FAERS Safety Report 6860168-4 (Version None)
Quarter: 2010Q3

REPORT INFORMATION
  Report Type: 
  Country: None (occurrence: None)
  Receive Date: 20100719
  Receipt Date: 20100719
  Transmission Date: 20110219
  Serious: No
  Sender: FDA-Public Use
  Company Number: None

PATIENT
  Age: 57 Year
  Sex: Male

DRUGS (1)
  1. FENTANYL [Suspect]
     Dosage: 100 MCG OTHER TOP
     Route: 061
     Dates: start: 20100603, end: 20100610

REACTIONS (3)
  - ERYTHEMA MULTIFORME [None]
  - PRODUCT SUBSTITUTION ISSUE [None]
  - SKIN IRRITATION [None]
